FAERS Safety Report 9853723 (Version 1)
Quarter: 2014Q1

REPORT INFORMATION
  Report Type: Spontaneous
  Country: US (occurrence: US)
  Receive Date: 20140129
  Receipt Date: 20140129
  Transmission Date: 20141002
  Serious: No
  Sender: FDA-Public Use
  Company Number: US-GLAXOSMITHKLINE-A1013531A

PATIENT
  Age: 72 Year
  Sex: Female

DRUGS (3)
  1. WELLBUTRIN [Suspect]
     Indication: ANXIETY
     Dosage: 75MG AT NIGHT
     Route: 048
     Dates: start: 1993
  2. AMITRIPTYLINE [Concomitant]
  3. AMBIEN [Concomitant]

REACTIONS (2)
  - Malaise [Recovered/Resolved]
  - Product quality issue [Unknown]
